FAERS Safety Report 6228331-3 (Version None)
Quarter: 2009Q2

REPORT INFORMATION
  Report Type: 
  Country: None (occurrence: None)
  Receive Date: 20090610
  Receipt Date: 20090610
  Transmission Date: 20091009
  Serious: Yes (Other)
  Sender: FDA-Public Use
  Company Number: None

PATIENT
  Sex: Female
  Weight: 77 kg

DRUGS (9)
  1. ALBUMIN (HUMAN) [Suspect]
     Dosage: 1.25G/KG ONCE DAILY X7DAY
     Dates: start: 20081025, end: 20081027
  2. MOM [Concomitant]
  3. DULCOLAX [Concomitant]
  4. COLACE [Concomitant]
  5. NIMODIPINE [Concomitant]
  6. ZANTAC [Concomitant]
  7. MAXERAN [Concomitant]
  8. ASPIRIN [Concomitant]
  9. DILANTIN [Concomitant]

REACTIONS (4)
  - ARTERIAL INJURY [None]
  - FLUID OVERLOAD [None]
  - MUSCULAR WEAKNESS [None]
  - PULMONARY OEDEMA [None]
